FAERS Safety Report 6242889-X (Version None)
Quarter: 2009Q2

REPORT INFORMATION
  Report Type: 
  Country: None (occurrence: None)
  Receive Date: 20090617
  Receipt Date: 20071114
  Transmission Date: 20091009
  Serious: No
  Sender: FDA-Public Use
  Company Number: 269364

PATIENT
  Age: 63 Year
  Sex: Female

DRUGS (1)
  1. LEVEMIR [Suspect]
     Indication: DIABETES MELLITUS
     Dosage: 28 LU, QD, SUBCUTANEOUS
     Route: 058
     Dates: start: 20070501

REACTIONS (2)
  - BLOOD GLUCOSE INCREASED [None]
  - FUNGAL INFECTION [None]
